FAERS Safety Report 10227903 (Version 1)
Quarter: 2014Q2

REPORT INFORMATION
  Report Type: Spontaneous
  Country: US (occurrence: US)
  Receive Date: 20140610
  Receipt Date: 20140610
  Transmission Date: 20141212
  Serious: No
  Sender: FDA-Public Use
  Company Number: US-009507513-1406USA004580

PATIENT
  Sex: Female
  Weight: 80.9 kg

DRUGS (2)
  1. NEXPLANON [Suspect]
     Indication: CONTRACEPTION
     Dosage: UNK
     Route: 059
     Dates: start: 20140509
  2. VITAMINS (UNSPECIFIED) [Concomitant]
     Dosage: UNK

REACTIONS (1)
  - Implant site pain [Not Recovered/Not Resolved]
